FAERS Safety Report 20662481 (Version 4)
Quarter: 2022Q3

REPORT INFORMATION
  Report Type: Spontaneous
  Country: US (occurrence: US)
  Receive Date: 20220401
  Receipt Date: 20220725
  Transmission Date: 20221027
  Serious: No
  Sender: FDA-Public Use
  Company Number: US-GSKCCFUS-Case-01337026_AE-77675

PATIENT
  Sex: Female
  Weight: 67.12 kg

DRUGS (1)
  1. BENLYSTA [Suspect]
     Active Substance: BELIMUMAB
     Indication: Product used for unknown indication
     Dosage: 200 MG/ML
     Dates: start: 20220131

REACTIONS (3)
  - Diarrhoea [Unknown]
  - Injection site haemorrhage [Unknown]
  - Product complaint [Unknown]
